FAERS Safety Report 5912249-7 (Version None)
Quarter: 2008Q4

REPORT INFORMATION
  Report Type: 
  Country: None (occurrence: None)
  Receive Date: 20081008
  Receipt Date: 20081003
  Transmission Date: 20090506
  Serious: Yes (Hospitalization, Other)
  Sender: FDA-Public Use
  Company Number: B0272536A

PATIENT
  Age: 23 Year
  Sex: Male

DRUGS (9)
  1. EPIVIR [Suspect]
     Indication: HIV INFECTION
     Dosage: 300MG PER DAY
     Route: 048
     Dates: start: 19970527, end: 20050408
  2. RETROVIR [Suspect]
     Indication: HIV INFECTION
     Route: 048
     Dates: start: 19891016, end: 20041213
  3. NOVACT M [Concomitant]
     Indication: FACTOR IX DEFICIENCY
     Route: 042
     Dates: start: 19990103
  4. NORVIR [Concomitant]
     Indication: HIV INFECTION
     Route: 048
     Dates: start: 20050719
  5. REYATAZ [Concomitant]
     Indication: HIV INFECTION
     Route: 048
     Dates: start: 20050719
  6. EPZICOM [Concomitant]
     Indication: HIV INFECTION
     Route: 048
     Dates: start: 20060803, end: 20061009
  7. TRUVADA [Concomitant]
     Indication: HIV INFECTION
     Route: 048
     Dates: start: 20050719
  8. REBETOL [Concomitant]
     Indication: HEPATITIS C
     Dosage: 800MG PER DAY
     Route: 048
     Dates: start: 20070613
  9. PEG-INTRON [Concomitant]
     Indication: HEPATITIS C
     Dosage: 80MCG PER DAY
     Route: 065
     Dates: start: 20070613

REACTIONS (7)
  - ATRIAL SEPTAL DEFECT [None]
  - HEADACHE [None]
  - LOSS OF CONSCIOUSNESS [None]
  - MUSCLE RIGIDITY [None]
  - PULMONARY HYPERTENSION [None]
  - SUBDURAL HAEMORRHAGE [None]
  - VOMITING [None]
